FAERS Safety Report 8300888-8 (Version None)
Quarter: 2012Q2

REPORT INFORMATION
  Report Type: 
  Country: None (occurrence: None)
  Receive Date: 20120420
  Receipt Date: 20120416
  Transmission Date: 20120825
  Serious: Yes (Death)
  Sender: FDA-Public Use
  Company Number: DE-ASTELLAS-2012EU002844

PATIENT

DRUGS (1)
  1. MYCAMINE [Suspect]
     Indication: OESOPHAGEAL CANDIDIASIS
     Dosage: 150 MG, UNKNOWN/D
     Route: 065

REACTIONS (1)
  - END STAGE AIDS [None]
